FAERS Safety Report 7369800-2 (Version None)
Quarter: 2011Q1

REPORT INFORMATION
  Report Type: 
  Country: None (occurrence: None)
  Receive Date: 20110323
  Receipt Date: 20110314
  Transmission Date: 20110831
  Serious: Yes (Hospitalization)
  Sender: FDA-Public Use
  Company Number: FI-ASTRAZENECA-2011SE13923

PATIENT
  Age: 264 Month
  Sex: Female

DRUGS (4)
  1. SEROQUEL XR [Suspect]
     Indication: INSOMNIA
     Route: 048
     Dates: start: 20110202, end: 20110206
  2. SEROQUEL XR [Suspect]
     Indication: PSYCHOTIC DISORDER
     Route: 048
     Dates: start: 20110202, end: 20110206
  3. SEROQUEL XR [Suspect]
     Route: 048
     Dates: start: 20110207, end: 20110215
  4. SEROQUEL XR [Suspect]
     Route: 048
     Dates: start: 20110207, end: 20110215

REACTIONS (7)
  - NEUROLEPTIC MALIGNANT SYNDROME [None]
  - FALL [None]
  - HEPATIC ENZYME INCREASED [None]
  - PNEUMONIA [None]
  - GAMMA-GLUTAMYLTRANSFERASE INCREASED [None]
  - ASPARTATE AMINOTRANSFERASE INCREASED [None]
  - ALANINE AMINOTRANSFERASE INCREASED [None]
